FAERS Safety Report 17765600 (Version 1)
Quarter: 2020Q2

REPORT INFORMATION
  Report Type: Spontaneous
  Country: US (occurrence: US)
  Receive Date: 20200509
  Receipt Date: 20200509
  Transmission Date: 20200714
  Serious: Yes (Disabling, Other)
  Sender: FDA-Public Use
  Company Number: None

PATIENT
  Age: 49 Year
  Sex: Male
  Weight: 74.25 kg

DRUGS (3)
  1. MAGNESIUM [Concomitant]
     Active Substance: MAGNESIUM
  2. CIPROFLOXACIN. [Suspect]
     Active Substance: CIPROFLOXACIN
     Indication: PROSTATITIS
     Dosage: ?          QUANTITY:20 TABLET(S);?
     Route: 048
     Dates: start: 20200324, end: 20200325
  3. MULTIVITAMIN SUPPLEMENT [Concomitant]

REACTIONS (13)
  - Neuropathy peripheral [None]
  - Muscle atrophy [None]
  - Pain [None]
  - Insomnia [None]
  - Anxiety [None]
  - Confusional state [None]
  - Balance disorder [None]
  - Dizziness [None]
  - Tachycardia [None]
  - Tremor [None]
  - Muscle twitching [None]
  - Muscular weakness [None]
  - Loss of personal independence in daily activities [None]

NARRATIVE: CASE EVENT DATE: 20200324
